FAERS Safety Report 6290971-3 (Version None)
Quarter: 2009Q3

REPORT INFORMATION
  Report Type: 
  Country: None (occurrence: None)
  Receive Date: 20090730
  Receipt Date: 20090722
  Transmission Date: 20100115
  Serious: Yes (Hospitalization)
  Sender: FDA-Public Use
  Company Number: FR-PFIZER INC-2009243871

PATIENT
  Age: 39 Year

DRUGS (2)
  1. DEPO-PROVERA [Suspect]
     Dosage: 1 INJECTION EVERY 3 MONTHS
     Route: 030
     Dates: start: 20080601, end: 20081201
  2. ORTHO EVRA [Suspect]
     Dosage: UNK
     Route: 058
     Dates: start: 20081201, end: 20090101

REACTIONS (2)
  - PULMONARY EMBOLISM [None]
  - VENOUS THROMBOSIS [None]
